FAERS Safety Report 13523596 (Version 2)
Quarter: 2017Q4

REPORT INFORMATION
  Report Type: Spontaneous
  Country: US (occurrence: US)
  Receive Date: 20170508
  Receipt Date: 20171207
  Transmission Date: 20180320
  Serious: No
  Sender: FDA-Public Use
  Company Number: US-VIFOR (INTERNATIONAL) INC.-VIT-2017-02350

PATIENT
  Sex: Male

DRUGS (9)
  1. METOPROLOL. [Concomitant]
     Active Substance: METOPROLOL
  2. FAMOT [Concomitant]
  3. AZATHIOPRINE. [Concomitant]
     Active Substance: AZATHIOPRINE
  4. VELTASSA [Suspect]
     Active Substance: PATIROMER
     Indication: HYPERKALAEMIA
     Route: 048
     Dates: start: 20170127
  5. GLYBURIDE. [Concomitant]
     Active Substance: GLYBURIDE
  6. PRAVASTATIN. [Concomitant]
     Active Substance: PRAVASTATIN
  7. TACROLIMUS. [Concomitant]
     Active Substance: TACROLIMUS
  8. SODIUM CARBONATE ANHYDROUS [Concomitant]
  9. VELTASSA [Suspect]
     Active Substance: PATIROMER
     Route: 048
     Dates: start: 2017

REACTIONS (3)
  - Malaise [Not Recovered/Not Resolved]
  - Product preparation error [Unknown]
  - Inappropriate schedule of drug administration [Unknown]

NARRATIVE: CASE EVENT DATE: 2017
